FAERS Safety Report 19113139 (Version 4)
Quarter: 2021Q2

REPORT INFORMATION
  Report Type: Report from Study
  Country: TR (occurrence: TR)
  Receive Date: 20210408
  Receipt Date: 20210518
  Transmission Date: 20210717
  Serious: Yes (Hospitalization, Other)
  Sender: FDA-Public Use
  Company Number: TR-BRISTOL-MYERS SQUIBB COMPANY-BMS-2021-030668

PATIENT
  Age: 58 Year
  Sex: Female
  Weight: 59 kg

DRUGS (4)
  1. NIVOLUMAB [Suspect]
     Active Substance: NIVOLUMAB
     Indication: OVARIAN CANCER
     Dosage: 3 MILLIGRAM/KILOGRAM (180 MG)
     Route: 042
     Dates: start: 20210310, end: 20210310
  2. NIVOLUMAB [Suspect]
     Active Substance: NIVOLUMAB
     Indication: CERVIX CARCINOMA
  3. IPILIMUMAB [Suspect]
     Active Substance: IPILIMUMAB
     Indication: OVARIAN CANCER
     Dosage: 1 MILLIGRAM/KILOGRAM (60 MG)
     Route: 042
     Dates: start: 20210310, end: 20210310
  4. IPILIMUMAB [Suspect]
     Active Substance: IPILIMUMAB
     Indication: CERVIX CARCINOMA

REACTIONS (5)
  - Malignant neoplasm progression [Unknown]
  - Infection [Recovered/Resolved]
  - Peritonitis [Unknown]
  - Cardio-respiratory arrest [Unknown]
  - Sepsis [Unknown]

NARRATIVE: CASE EVENT DATE: 20210326
